FAERS Safety Report 8614667-5 (Version None)
Quarter: 2012Q3

REPORT INFORMATION
  Report Type: 
  Country: None (occurrence: None)
  Receive Date: 20120823
  Receipt Date: 20120815
  Transmission Date: 20120928
  Serious: No
  Sender: FDA-Public Use
  Company Number: US-US-EMD SERONO, INC.-7101102

PATIENT
  Sex: Male
  Weight: 94 kg

DRUGS (29)
  1. EGRIFTA [Suspect]
     Indication: LIPODYSTROPHY ACQUIRED
     Route: 058
     Dates: start: 20110405, end: 20120510
  2. LIPITOR [Concomitant]
     Indication: PRODUCT USED FOR UNKNOWN INDICATION
  3. SYNTHROID [Concomitant]
     Indication: PRODUCT USED FOR UNKNOWN INDICATION
     Route: 048
  4. REYATAZ [Concomitant]
     Indication: AUTOIMMUNE DISORDER
  5. NORVIR [Concomitant]
     Indication: AUTOIMMUNE DISORDER
  6. LISINOPRIL [Concomitant]
     Indication: HYPERTENSION
  7. SEROQUEL [Concomitant]
     Indication: PRODUCT USED FOR UNKNOWN INDICATION
     Route: 048
  8. NORCO [Concomitant]
     Indication: BREAKTHROUGH PAIN
  9. SELZENTRY [Concomitant]
     Indication: AUTOIMMUNE DISORDER
     Route: 048
  10. PRAZOSIN [Concomitant]
     Indication: POST-TRAUMATIC STRESS DISORDER
     Route: 048
  11. PRAZOSIN [Concomitant]
     Indication: NIGHTMARE
  12. CYCLOBENZAPRINE [Concomitant]
     Indication: MUSCLE SPASMS
  13. LAMICTAL [Concomitant]
     Indication: PRODUCT USED FOR UNKNOWN INDICATION
     Route: 048
  14. DICYCLOMINE [Concomitant]
     Indication: IRRITABLE BOWEL SYNDROME
     Route: 048
  15. MORPHINE SULFATE [Concomitant]
     Indication: PAIN
  16. BACTRIM DS [Concomitant]
     Indication: PRODUCT USED FOR UNKNOWN INDICATION
     Route: 048
  17. ZERIT [Concomitant]
     Indication: AUTOIMMUNE DISORDER
     Route: 048
  18. ARMODAFINIL [Concomitant]
     Indication: PRODUCT USED FOR UNKNOWN INDICATION
  19. ALBUTEROL [Concomitant]
     Indication: PRODUCT USED FOR UNKNOWN INDICATION
  20. VALTREX [Concomitant]
     Indication: HERPES VIRUS INFECTION
  21. GEMFIBROZIL [Concomitant]
     Indication: PRODUCT USED FOR UNKNOWN INDICATION
     Route: 048
  22. ADDERALL [Concomitant]
     Indication: PRODUCT USED FOR UNKNOWN INDICATION
  23. SENOKOT [Concomitant]
     Indication: CONSTIPATION
  24. CLONAZEPAM [Concomitant]
     Indication: PRODUCT USED FOR UNKNOWN INDICATION
     Route: 048
  25. PIROXICAM [Concomitant]
     Indication: PAIN
  26. TESTOSTERONE CYPIONATE [Concomitant]
     Indication: PRODUCT USED FOR UNKNOWN INDICATION
     Route: 030
  27. INDERAL LA [Concomitant]
     Indication: HYPERTENSION
  28. DUONEB [Concomitant]
     Indication: WHEEZING
     Route: 055
  29. MUPIROCIN [Concomitant]
     Indication: PRODUCT USED FOR UNKNOWN INDICATION
     Route: 045

REACTIONS (1)
  - INJECTION SITE HAEMATOMA [None]
